FAERS Safety Report 5528306-3 (Version None)
Quarter: 2007Q4

REPORT INFORMATION
  Report Type: 
  Country: None (occurrence: None)
  Receive Date: 20071109
  Receipt Date: 20070305
  Transmission Date: 20080405
  Serious: Yes (Other)
  Sender: FDA-Public Use
  Company Number: PHEH2007US02728

PATIENT
  Age: 57 Year
  Sex: Female
  Weight: 75.7 kg

DRUGS (7)
  1. ESTRADERM [Suspect]
     Indication: HORMONE REPLACEMENT THERAPY
     Dosage: 0.05 MG, TRANSDERMAL
     Route: 062
     Dates: start: 19940421
  2. PREMARIN [Suspect]
     Indication: HORMONE REPLACEMENT THERAPY
     Dosage: 0.625 MG, QD, ORAL
     Route: 048
     Dates: start: 19930101
  3. PROVERA [Suspect]
     Indication: HORMONE REPLACEMENT THERAPY
  4. ACCUPRIL [Concomitant]
  5. CARDIZEM CD [Concomitant]
  6. CALTRATE (CALCIUM CARBONATE) [Concomitant]
  7. VITAMIN E [Concomitant]

REACTIONS (8)
  - BREAST CANCER IN SITU [None]
  - BREAST MASS [None]
  - ELECTROCARDIOGRAM T WAVE INVERSION [None]
  - HYSTERECTOMY [None]
  - LYMPHADENECTOMY [None]
  - MALIGNANT BREAST LUMP REMOVAL [None]
  - SALPINGO-OOPHORECTOMY BILATERAL [None]
  - UTERINE LEIOMYOMA [None]
